FAERS Safety Report 10487736 (Version 2)
Quarter: 2014Q4

REPORT INFORMATION
  Report Type: Report from Study
  Country: CA (occurrence: CA)
  Receive Date: 20141001
  Receipt Date: 20141001
  Transmission Date: 20150528
  Serious: Yes (Other)
  Sender: FDA-Public Use
  Company Number: CA-ABBVIE-13P-028-1128370-00

PATIENT
  Age: 32 Year
  Sex: Female
  Weight: 102 kg

DRUGS (3)
  1. HUMIRA [Suspect]
     Active Substance: ADALIMUMAB
     Route: 058
     Dates: start: 2013
  2. HUMIRA [Suspect]
     Active Substance: ADALIMUMAB
     Indication: CROHN^S DISEASE
     Route: 058
     Dates: start: 20120330, end: 20130627
  3. ESCITALOPRAM [Concomitant]
     Active Substance: ESCITALOPRAM OXALATE
     Indication: PRODUCT USED FOR UNKNOWN INDICATION

REACTIONS (3)
  - Vaginal haemorrhage [Not Recovered/Not Resolved]
  - Abortion spontaneous [Unknown]
  - Haemorrhage [Not Recovered/Not Resolved]

NARRATIVE: CASE EVENT DATE: 2013
